FAERS Safety Report 9912647 (Version 1)
Quarter: 2014Q1

REPORT INFORMATION
  Report Type: Spontaneous
  Country: US (occurrence: None)
  Receive Date: 20140212
  Receipt Date: 20140212
  Transmission Date: 20141002
  Serious: Yes (Hospitalization)
  Sender: FDA-Public Use
  Company Number: CO-KP-US-2014-008

PATIENT
  Age: 26 Year
  Sex: Female

DRUGS (2)
  1. CLONIDINE [Suspect]
  2. COCAINE [Suspect]

REACTIONS (9)
  - Syncope [None]
  - Drug abuse [None]
  - Sinus bradycardia [None]
  - Ventricular arrhythmia [None]
  - Ventricular extrasystoles [None]
  - Extrasystoles [None]
  - Ventricular tachycardia [None]
  - Torsade de pointes [None]
  - Electrocardiogram QT prolonged [None]
